FAERS Safety Report 21932945 (Version 4)
Quarter: 2023Q2

REPORT INFORMATION
  Report Type: Spontaneous
  Country: US (occurrence: US)
  Receive Date: 20230131
  Receipt Date: 20230419
  Transmission Date: 20230722
  Serious: No
  Sender: FDA-Public Use
  Company Number: US-Calliditas-2023CAL00082

PATIENT
  Age: 58 Year
  Sex: Male
  Weight: 82.1 kg

DRUGS (6)
  1. TARPEYO [Suspect]
     Active Substance: BUDESONIDE
     Indication: Haematuria
     Dosage: 16 MG (4 MG CAPSULES) ONCE DAILY
     Route: 048
     Dates: start: 20230112
  2. LISINOPRIL [Concomitant]
     Active Substance: LISINOPRIL
     Indication: Blood pressure management
  3. FISH OIL [Concomitant]
     Active Substance: FISH OIL
     Dosage: IN THE MORNING AND AT NIGHT
  4. ROSUVASTATIN [Concomitant]
     Active Substance: ROSUVASTATIN
  5. SODIUM BICARBONATE [Concomitant]
     Active Substance: SODIUM BICARBONATE
     Dosage: AT NIGHT
  6. MULTIVITAMIN AND ELEMENTS [Concomitant]

REACTIONS (6)
  - Productive cough [Recovered/Resolved]
  - Dysphonia [Not Recovered/Not Resolved]
  - Gastroenteritis viral [Recovered/Resolved]
  - Vomiting [Recovered/Resolved]
  - Product dose omission issue [Recovered/Resolved]
  - Headache [Recovered/Resolved]

NARRATIVE: CASE EVENT DATE: 20230122
